FAERS Safety Report 24240790 (Version 3)
Quarter: 2025Q2

REPORT INFORMATION
  Report Type: Spontaneous
  Country: FR (occurrence: FR)
  Receive Date: 20240823
  Receipt Date: 20250612
  Transmission Date: 20250716
  Serious: Yes (Other)
  Sender: AUROBINDO
  Company Number: FR-EMA-20150311-AUTODUP-372109

PATIENT
  Age: 56 Year
  Sex: Male

DRUGS (2)
  1. DOCETAXEL [Suspect]
     Active Substance: DOCETAXEL
     Indication: Metastases to lymph nodes
     Route: 065
  2. EVEROLIMUS [Suspect]
     Active Substance: EVEROLIMUS
     Indication: Metastases to lymph nodes
     Dosage: 10 MILLIGRAM, ONCE A DAY
     Route: 065

REACTIONS (8)
  - Metastases to lymph nodes [Unknown]
  - Mucosal inflammation [Unknown]
  - Oesophagitis [Unknown]
  - Pharyngitis [Unknown]
  - Therapeutic response decreased [Unknown]
  - Toxicity to various agents [Unknown]
  - Drug ineffective [Unknown]
  - Product use in unapproved indication [Unknown]
